FAERS Safety Report 5074445-3 (Version None)
Quarter: 2006Q3

REPORT INFORMATION
  Report Type: 
  Country: None (occurrence: None)
  Receive Date: 20060803
  Receipt Date: 20060726
  Transmission Date: 20061208
  Serious: Yes (Other)
  Sender: FDA-Public Use
  Company Number: GBWYE680802JUN06

PATIENT
  Sex: Female

DRUGS (1)
  1. PREMARIN [Suspect]
     Dosage: TWO 0.62MG TABLETS, ORAL
     Route: 048

REACTIONS (2)
  - FOOD ALLERGY [None]
  - REACTION TO COLOURING [None]
